FAERS Safety Report 25355824 (Version 1)
Quarter: 2025Q2

REPORT INFORMATION
  Report Type: Spontaneous
  Country: US (occurrence: US)
  Receive Date: 20250525
  Receipt Date: 20250525
  Transmission Date: 20250716
  Serious: No
  Sender: DR REDDYS
  Company Number: US-DRL-USA-USA/2025/05/007098

PATIENT
  Age: 88 Year
  Sex: Male
  Weight: 53.52 kg

DRUGS (1)
  1. FLUOROURACIL [Suspect]
     Active Substance: FLUOROURACIL
     Indication: Skin disorder
     Dosage: 40 G TUBES, SN: 2ETAPJTVJR4,
     Route: 061

REACTIONS (2)
  - Drug ineffective [Unknown]
  - Pruritus [Unknown]
